FAERS Safety Report 5779743-3 (Version None)
Quarter: 2008Q2

REPORT INFORMATION
  Report Type: 
  Country: None (occurrence: None)
  Receive Date: 20080617
  Receipt Date: 20080604
  Transmission Date: 20081010
  Serious: Yes (Other)
  Sender: FDA-Public Use
  Company Number: 2008AP001362

PATIENT
  Age: 75 Year
  Sex: Female

DRUGS (2)
  1. METRONIDAZOLE [Suspect]
     Indication: DIVERTICULITIS
     Dosage: 500 MG; TAB; PO; QID
     Route: 048
     Dates: start: 20080424, end: 20080502
  2. CIPROFLOXACIN HYDROCHLORIDE [Suspect]
     Dosage: 500 MG; TAB; PO; BID
     Route: 048
     Dates: start: 20080425, end: 20080501

REACTIONS (10)
  - BALANCE DISORDER [None]
  - CHROMATURIA [None]
  - CONSTIPATION [None]
  - DIARRHOEA [None]
  - DIZZINESS [None]
  - DYSGEUSIA [None]
  - ERUCTATION [None]
  - HAEMORRHOIDS [None]
  - NAUSEA [None]
  - RETCHING [None]
